FAERS Safety Report 8048446-7 (Version None)
Quarter: 2012Q1

REPORT INFORMATION
  Report Type: 
  Country: None (occurrence: None)
  Receive Date: 20120117
  Receipt Date: 20120109
  Transmission Date: 20120608
  Serious: Yes (Other)
  Sender: FDA-Public Use
  Company Number: US-PFIZER INC-2012006476

PATIENT
  Age: 32 Year
  Sex: Female
  Weight: 119 kg

DRUGS (1)
  1. DEPO-SUBQ PROVERA 104 [Suspect]
     Indication: ENDOMETRIOSIS
     Dosage: 104/0.65 MG/ML
     Dates: start: 20111123

REACTIONS (1)
  - VAGINAL HAEMORRHAGE [None]
